FAERS Safety Report 15438119 (Version 1)
Quarter: 2018Q3

REPORT INFORMATION
  Report Type: Report from Study
  Country: IT (occurrence: IT)
  Receive Date: 20180928
  Receipt Date: 20180928
  Transmission Date: 20181010
  Serious: Yes (Death, Other)
  Sender: FDA-Public Use
  Company Number: IT-TEVA-2018-IT-956966

PATIENT
  Age: 58 Year
  Sex: Male

DRUGS (1)
  1. LITHIUM. [Suspect]
     Active Substance: LITHIUM
     Indication: BIPOLAR I DISORDER
     Route: 065

REACTIONS (2)
  - Hyperadrenalism [Unknown]
  - Clear cell renal cell carcinoma [Unknown]

NARRATIVE: CASE EVENT DATE: 2003
